FAERS Safety Report 8795408 (Version 2)
Quarter: 2015Q3

REPORT INFORMATION
  Report Type: Report from Study
  Country: US (occurrence: US)
  Receive Date: 20120917
  Receipt Date: 20150701
  Transmission Date: 20151125
  Serious: Yes (Death, Hospitalization)
  Sender: FDA-Public Use
  Company Number: US-ROCHE-1129344

PATIENT
  Sex: Male
  Weight: 92 kg

DRUGS (10)
  1. AVASTIN [Suspect]
     Active Substance: BEVACIZUMAB
     Indication: BRAIN NEOPLASM MALIGNANT
     Route: 042
  2. FRISIUM [Concomitant]
     Active Substance: CLOBAZAM
     Route: 065
  3. DEXAMETHASONE. [Concomitant]
     Active Substance: DEXAMETHASONE
     Route: 065
  4. DEXAMETHASONE. [Concomitant]
     Active Substance: DEXAMETHASONE
     Route: 065
  5. KEPPRA [Concomitant]
     Active Substance: LEVETIRACETAM
     Route: 065
  6. AVASTIN [Suspect]
     Active Substance: BEVACIZUMAB
     Route: 042
  7. DEXAMETHASONE. [Concomitant]
     Active Substance: DEXAMETHASONE
     Route: 065
  8. NEXIUM [Concomitant]
     Active Substance: ESOMEPRAZOLE MAGNESIUM
     Route: 065
  9. TEMOZOLOMIDE. [Concomitant]
     Active Substance: TEMOZOLOMIDE
  10. AVASTIN [Suspect]
     Active Substance: BEVACIZUMAB
     Indication: BRAIN NEOPLASM MALIGNANT
     Route: 042
     Dates: start: 20060719

REACTIONS (24)
  - Bradyphrenia [Unknown]
  - Arthralgia [Unknown]
  - Death [Fatal]
  - Paraesthesia [Unknown]
  - Deformity [Unknown]
  - Cognitive disorder [Unknown]
  - Hypoaesthesia [Unknown]
  - Amnesia [Unknown]
  - Tumour invasion [Unknown]
  - Seizure [Unknown]
  - Alanine aminotransferase increased [Unknown]
  - Bone disorder [Unknown]
  - Alopecia [Unknown]
  - Asthenia [Unknown]
  - Balance disorder [Unknown]
  - Swelling [Unknown]
  - Dysuria [Unknown]
  - Dry skin [Unknown]
  - Off label use [Unknown]
  - Neurological decompensation [Unknown]
  - Headache [Unknown]
  - Central nervous system lesion [Unknown]
  - Ataxia [Unknown]
  - Confusional state [Unknown]
